FAERS Safety Report 20636710 (Version 1)
Quarter: 2022Q1

REPORT INFORMATION
  Report Type: Spontaneous
  Country: US (occurrence: US)
  Receive Date: 20220325
  Receipt Date: 20220325
  Transmission Date: 20220423
  Serious: No
  Sender: FDA-Public Use
  Company Number: US-PFIZER INC-202200323239

PATIENT
  Age: 83 Year
  Sex: Female
  Weight: 65.32 kg

DRUGS (1)
  1. AMLODIPINE BESYLATE [Suspect]
     Active Substance: AMLODIPINE BESYLATE
     Dosage: 2.5 MG
     Dates: start: 20220217

REACTIONS (2)
  - Drug hypersensitivity [Unknown]
  - Rash macular [Unknown]
